FAERS Safety Report 5714206-2 (Version None)
Quarter: 2008Q2

REPORT INFORMATION
  Report Type: 
  Country: None (occurrence: None)
  Receive Date: 20080423
  Receipt Date: 20080104
  Transmission Date: 20081010
  Serious: No
  Sender: FDA-Public Use
  Company Number: US-KINGPHARMUSA00001-K200800016

PATIENT

DRUGS (2)
  1. SKELAXIN [Suspect]
     Indication: MUSCLE SPASMS
     Dates: start: 20071226, end: 20071231
  2. SKELAXIN [Suspect]
     Indication: TINNITUS

REACTIONS (5)
  - AGEUSIA [None]
  - EYELID PTOSIS [None]
  - FACIAL PALSY [None]
  - HERPES ZOSTER [None]
  - PAIN IN JAW [None]
